FAERS Safety Report 19525568 (Version 1)
Quarter: 2021Q3

REPORT INFORMATION
  Report Type: Spontaneous
  Country: US (occurrence: US)
  Receive Date: 20210712
  Receipt Date: 20210712
  Transmission Date: 20211014
  Serious: Yes (Hospitalization)
  Sender: FDA-Public Use
  Company Number: None

PATIENT
  Age: 63 Year
  Sex: Female

DRUGS (14)
  1. MINOCYCLINE [Concomitant]
     Active Substance: MINOCYCLINE HYDROCHLORIDE
  2. TRAMADOL HCL [Concomitant]
     Active Substance: TRAMADOL HYDROCHLORIDE
  3. ASPIRIN CHW [Concomitant]
  4. DIGOXIN. [Concomitant]
     Active Substance: DIGOXIN
  5. POT CL MICRO ER [Concomitant]
  6. CYCLOSPORINE MODIFIED [Concomitant]
     Active Substance: CYCLOSPORINE
  7. ADCIRCA [Suspect]
     Active Substance: TADALAFIL
     Indication: PULMONARY ARTERIAL HYPERTENSION
     Route: 048
     Dates: start: 20210226
  8. GABAPENTIN. [Concomitant]
     Active Substance: GABAPENTIN
  9. METOLAZONE. [Concomitant]
     Active Substance: METOLAZONE
  10. URSODIOL. [Concomitant]
     Active Substance: URSODIOL
  11. AMBRISENTAN 10MG TAB [Suspect]
     Active Substance: AMBRISENTAN
     Indication: PULMONARY ARTERIAL HYPERTENSION
     Route: 048
     Dates: start: 20191008
  12. SIROLIMUS. [Concomitant]
     Active Substance: SIROLIMUS
  13. AMOXICILLIN. [Concomitant]
     Active Substance: AMOXICILLIN
  14. BUMETANIDE. [Concomitant]
     Active Substance: BUMETANIDE

REACTIONS (2)
  - Skin ulcer [None]
  - Peripheral swelling [None]

NARRATIVE: CASE EVENT DATE: 20210622
